FAERS Safety Report 6758342-0 (Version None)
Quarter: 2010Q2

REPORT INFORMATION
  Report Type: 
  Country: None (occurrence: None)
  Receive Date: 20100607
  Receipt Date: 20100423
  Transmission Date: 20101027
  Serious: Yes (Death, Hospitalization, Other)
  Sender: FDA-Public Use
  Company Number: US-BAXTER-2010BH001551

PATIENT
  Age: 77 Year
  Sex: Female

DRUGS (136)
  1. HEPARIN SODIUM INJECTION [Suspect]
     Indication: ARTERIAL OCCLUSIVE DISEASE
     Route: 040
     Dates: start: 20071023, end: 20071023
  2. HEPARIN SODIUM INJECTION [Suspect]
     Indication: PERIPHERAL ISCHAEMIA
     Route: 040
     Dates: start: 20071023, end: 20071023
  3. HEPARIN SODIUM INJECTION [Suspect]
     Indication: THROMBECTOMY
     Route: 040
     Dates: start: 20071023, end: 20071023
  4. HEPARIN SODIUM INJECTION [Suspect]
     Indication: HAEMODIALYSIS
     Route: 040
     Dates: start: 20071023, end: 20071023
  5. HEPARIN SODIUM INJECTION [Suspect]
     Indication: THROMBOSIS PROPHYLAXIS
     Route: 040
     Dates: start: 20071023, end: 20071023
  6. HEPARIN SODIUM INJECTION [Suspect]
     Route: 041
     Dates: start: 20071023, end: 20071023
  7. HEPARIN SODIUM INJECTION [Suspect]
     Route: 041
     Dates: start: 20071023, end: 20071023
  8. HEPARIN SODIUM INJECTION [Suspect]
     Route: 041
     Dates: start: 20071023, end: 20071023
  9. HEPARIN SODIUM INJECTION [Suspect]
     Route: 041
     Dates: start: 20071023, end: 20071023
  10. HEPARIN SODIUM INJECTION [Suspect]
     Route: 041
     Dates: start: 20071023, end: 20071023
  11. HEPARIN SODIUM INJECTION [Suspect]
     Route: 042
     Dates: start: 20071024, end: 20071024
  12. HEPARIN SODIUM INJECTION [Suspect]
     Route: 042
     Dates: start: 20071024, end: 20071024
  13. HEPARIN SODIUM INJECTION [Suspect]
     Route: 042
     Dates: start: 20071024, end: 20071024
  14. HEPARIN SODIUM INJECTION [Suspect]
     Route: 042
     Dates: start: 20071024, end: 20071024
  15. HEPARIN SODIUM INJECTION [Suspect]
     Route: 042
     Dates: start: 20071024, end: 20071024
  16. HEPARIN SODIUM INJECTION [Suspect]
     Route: 013
     Dates: start: 20071024, end: 20071024
  17. HEPARIN SODIUM INJECTION [Suspect]
     Route: 013
     Dates: start: 20071024, end: 20071024
  18. HEPARIN SODIUM INJECTION [Suspect]
     Route: 013
     Dates: start: 20071024, end: 20071024
  19. HEPARIN SODIUM INJECTION [Suspect]
     Route: 013
     Dates: start: 20071024, end: 20071024
  20. HEPARIN SODIUM INJECTION [Suspect]
     Route: 013
     Dates: start: 20071024, end: 20071024
  21. HEPARIN SODIUM INJECTION [Suspect]
     Route: 042
     Dates: start: 20071024, end: 20071024
  22. HEPARIN SODIUM INJECTION [Suspect]
     Route: 042
     Dates: start: 20071024, end: 20071024
  23. HEPARIN SODIUM INJECTION [Suspect]
     Route: 042
     Dates: start: 20071024, end: 20071024
  24. HEPARIN SODIUM INJECTION [Suspect]
     Route: 042
     Dates: start: 20071024, end: 20071024
  25. HEPARIN SODIUM INJECTION [Suspect]
     Route: 042
     Dates: start: 20071024, end: 20071024
  26. HEPARIN SODIUM INJECTION [Suspect]
     Route: 040
     Dates: start: 20071030, end: 20071105
  27. HEPARIN SODIUM INJECTION [Suspect]
     Route: 040
     Dates: start: 20071030, end: 20071105
  28. HEPARIN SODIUM INJECTION [Suspect]
     Route: 040
     Dates: start: 20071030, end: 20071105
  29. HEPARIN SODIUM INJECTION [Suspect]
     Route: 040
     Dates: start: 20071030, end: 20071105
  30. HEPARIN SODIUM INJECTION [Suspect]
     Route: 040
     Dates: start: 20071030, end: 20071105
  31. HEPARIN SODIUM INJECTION [Suspect]
     Route: 040
     Dates: start: 20071030, end: 20071105
  32. HEPARIN SODIUM INJECTION [Suspect]
     Route: 040
     Dates: start: 20071030, end: 20071105
  33. HEPARIN SODIUM INJECTION [Suspect]
     Route: 040
     Dates: start: 20071030, end: 20071105
  34. HEPARIN SODIUM INJECTION [Suspect]
     Route: 040
     Dates: start: 20071030, end: 20071105
  35. HEPARIN SODIUM INJECTION [Suspect]
     Route: 040
     Dates: start: 20071030, end: 20071105
  36. HEPARIN SODIUM INJECTION [Suspect]
     Route: 058
     Dates: start: 20071106, end: 20071111
  37. HEPARIN SODIUM INJECTION [Suspect]
     Route: 058
     Dates: start: 20071106, end: 20071111
  38. HEPARIN SODIUM INJECTION [Suspect]
     Route: 058
     Dates: start: 20071106, end: 20071111
  39. HEPARIN SODIUM INJECTION [Suspect]
     Route: 058
     Dates: start: 20071106, end: 20071111
  40. HEPARIN SODIUM INJECTION [Suspect]
     Route: 058
     Dates: start: 20071106, end: 20071111
  41. HEPARIN SODIUM INJECTION [Suspect]
     Route: 040
     Dates: start: 20071112, end: 20071112
  42. HEPARIN SODIUM INJECTION [Suspect]
     Route: 040
     Dates: start: 20071112, end: 20071112
  43. HEPARIN SODIUM INJECTION [Suspect]
     Route: 040
     Dates: start: 20071112, end: 20071112
  44. HEPARIN SODIUM INJECTION [Suspect]
     Route: 040
     Dates: start: 20071112, end: 20071112
  45. HEPARIN SODIUM INJECTION [Suspect]
     Route: 040
     Dates: start: 20071112, end: 20071112
  46. HEPARIN SODIUM INJECTION [Suspect]
     Route: 058
     Dates: start: 20071208, end: 20071221
  47. HEPARIN SODIUM INJECTION [Suspect]
     Route: 058
     Dates: start: 20071208, end: 20071221
  48. HEPARIN SODIUM INJECTION [Suspect]
     Route: 058
     Dates: start: 20071208, end: 20071221
  49. HEPARIN SODIUM INJECTION [Suspect]
     Route: 058
     Dates: start: 20071208, end: 20071221
  50. HEPARIN SODIUM INJECTION [Suspect]
     Route: 058
     Dates: start: 20071208, end: 20071221
  51. HEPARIN SODIUM INJECTION [Suspect]
     Route: 040
     Dates: start: 20071221, end: 20071221
  52. HEPARIN SODIUM INJECTION [Suspect]
     Route: 040
     Dates: start: 20071221, end: 20071221
  53. HEPARIN SODIUM INJECTION [Suspect]
     Route: 040
     Dates: start: 20071221, end: 20071221
  54. HEPARIN SODIUM INJECTION [Suspect]
     Route: 040
     Dates: start: 20071221, end: 20071221
  55. HEPARIN SODIUM INJECTION [Suspect]
     Route: 040
     Dates: start: 20071221, end: 20071221
  56. HEPARIN SODIUM INJECTION [Suspect]
     Route: 058
     Dates: start: 20080219, end: 20080220
  57. HEPARIN SODIUM INJECTION [Suspect]
     Route: 058
     Dates: start: 20080219, end: 20080220
  58. HEPARIN SODIUM INJECTION [Suspect]
     Route: 058
     Dates: start: 20080219, end: 20080220
  59. HEPARIN SODIUM INJECTION [Suspect]
     Route: 058
     Dates: start: 20080219, end: 20080220
  60. HEPARIN SODIUM INJECTION [Suspect]
     Route: 058
     Dates: start: 20080219, end: 20080220
  61. HEPARIN SODIUM 5,000 UNITS IN DEXTROSE 5% [Suspect]
     Indication: ANTICOAGULANT THERAPY
     Route: 041
     Dates: start: 20071024, end: 20071101
  62. HEPARIN SODIUM 5,000 UNITS IN DEXTROSE 5% [Suspect]
     Route: 041
     Dates: start: 20071101, end: 20071106
  63. HEPARIN SODIUM 5,000 UNITS IN DEXTROSE 5% [Suspect]
     Route: 041
     Dates: start: 20071112, end: 20071101
  64. HEPARIN SODIUM 10,000 UNITS IN SODIUM CHLORIDE 0.45% [Suspect]
     Indication: DEEP VEIN THROMBOSIS
     Route: 042
     Dates: start: 20071221, end: 20071226
  65. AMITRIPTYLINE [Concomitant]
     Indication: DRUG USE FOR UNKNOWN INDICATION
     Route: 065
  66. ATENOLOL [Concomitant]
     Indication: DRUG USE FOR UNKNOWN INDICATION
     Route: 048
  67. HYDROCHLOROTHIAZIDE [Concomitant]
     Indication: DRUG USE FOR UNKNOWN INDICATION
     Route: 065
  68. SIMVASTATIN [Concomitant]
     Indication: DRUG USE FOR UNKNOWN INDICATION
     Route: 065
  69. ACETAMINOPHEN [Concomitant]
     Indication: DRUG USE FOR UNKNOWN INDICATION
     Route: 065
  70. ACYCLOVIR [Concomitant]
     Indication: DRUG USE FOR UNKNOWN INDICATION
     Route: 061
  71. ADENOSINE [Concomitant]
     Indication: DRUG USE FOR UNKNOWN INDICATION
     Route: 065
  72. ALBUMIN 25% [Concomitant]
     Indication: DRUG USE FOR UNKNOWN INDICATION
     Route: 065
  73. ALBUTEROL [Concomitant]
     Indication: DRUG USE FOR UNKNOWN INDICATION
     Route: 065
  74. BENADRYL ^WARNER-LAMBERT^               /USA/ [Concomitant]
     Indication: TRANSFUSION
     Route: 065
  75. REGULAR INSULIN [Concomitant]
     Indication: DRUG USE FOR UNKNOWN INDICATION
     Route: 058
  76. CALCIUM CHLORIDE ^BIOTIKA^ [Concomitant]
     Indication: DRUG USE FOR UNKNOWN INDICATION
     Route: 065
  77. CANASA [Concomitant]
     Indication: DRUG USE FOR UNKNOWN INDICATION
     Route: 065
  78. CEFAZOLIN SODIUM [Concomitant]
     Indication: DRUG USE FOR UNKNOWN INDICATION
     Route: 042
  79. CORTROSYN [Concomitant]
     Indication: DRUG USE FOR UNKNOWN INDICATION
     Route: 065
  80. CULTURELLE CAP [Concomitant]
     Indication: DRUG USE FOR UNKNOWN INDICATION
     Route: 065
  81. DEXTROSE 5% AND SODIUM CHLORIDE 0.45% IN PLASTIC CONTAINER [Concomitant]
     Indication: DRUG USE FOR UNKNOWN INDICATION
     Route: 042
  82. DEXTROSE CONCENTRATE SOLUTION 50% [Concomitant]
     Indication: DRUG USE FOR UNKNOWN INDICATION
     Route: 042
  83. DRUG USED IN DIABETES [Concomitant]
     Indication: DRUG USE FOR UNKNOWN INDICATION
     Route: 065
  84. INTROPIN [Concomitant]
     Indication: DRUG USE FOR UNKNOWN INDICATION
     Route: 065
  85. ETHEZYME [Concomitant]
     Indication: DRUG USE FOR UNKNOWN INDICATION
     Route: 065
  86. EPOGEN [Concomitant]
     Indication: DRUG USE FOR UNKNOWN INDICATION
     Route: 058
  87. ETOMIDATE [Concomitant]
     Indication: DRUG USE FOR UNKNOWN INDICATION
     Route: 065
  88. ESOMEPRAZOLE [Concomitant]
     Indication: DRUG USE FOR UNKNOWN INDICATION
     Route: 065
  89. FENTANYL [Concomitant]
     Indication: DRUG USE FOR UNKNOWN INDICATION
     Route: 065
  90. SACCHAROMYCES BOULARDII [Concomitant]
     Indication: DRUG USE FOR UNKNOWN INDICATION
     Route: 065
  91. FLUDROCORTISONE [Concomitant]
     Indication: DRUG USE FOR UNKNOWN INDICATION
     Route: 065
  92. FORTAZ [Concomitant]
     Indication: DRUG USE FOR UNKNOWN INDICATION
     Route: 065
  93. GLUCERNA ^ABBOTT^ [Concomitant]
     Indication: DRUG USE FOR UNKNOWN INDICATION
     Route: 065
  94. HALOPERIDOL [Concomitant]
     Indication: DRUG USE FOR UNKNOWN INDICATION
     Route: 065
  95. HETASTARCH 6% IN 0.9% SODIUM CHLORIDE IN PLASTIC CONTAINER [Concomitant]
     Indication: DRUG USE FOR UNKNOWN INDICATION
     Route: 065
  96. LORTAB [Concomitant]
     Indication: PAIN
     Route: 065
  97. SOLU-CORTEF [Concomitant]
     Indication: DRUG USE FOR UNKNOWN INDICATION
     Route: 065
  98. IBUPROFEN [Concomitant]
     Indication: DRUG USE FOR UNKNOWN INDICATION
     Route: 065
  99. IPRATROPIUM BROMIDE [Concomitant]
     Indication: DRUG USE FOR UNKNOWN INDICATION
     Route: 065
  100. ALBUTEROL SULFATE AND IPRATROPIUM BROMIDE [Concomitant]
     Indication: DRUG USE FOR UNKNOWN INDICATION
     Route: 065
  101. HYDROMORPHONE HCL [Concomitant]
     Indication: DRUG USE FOR UNKNOWN INDICATION
     Route: 065
  102. REGULAR INSULIN [Concomitant]
     Route: 065
  103. POTASSIUM CHLORIDE [Concomitant]
     Indication: DRUG USE FOR UNKNOWN INDICATION
     Route: 042
  104. LACTOBACILLUS REUTERI [Concomitant]
     Indication: DRUG USE FOR UNKNOWN INDICATION
     Route: 065
  105. LANTUS [Concomitant]
     Indication: DRUG USE FOR UNKNOWN INDICATION
     Route: 065
  106. LASIX [Concomitant]
     Indication: DRUG USE FOR UNKNOWN INDICATION
     Route: 065
  107. LORAZEPAM [Concomitant]
     Indication: DRUG USE FOR UNKNOWN INDICATION
     Route: 042
  108. MAGNESIUM SULFATE [Concomitant]
     Indication: DRUG USE FOR UNKNOWN INDICATION
     Route: 065
  109. METOPROLOL TARTRATE [Concomitant]
     Indication: DRUG USE FOR UNKNOWN INDICATION
     Route: 065
  110. MORPHINE SULFATE [Concomitant]
     Indication: DRUG USE FOR UNKNOWN INDICATION
     Route: 042
  111. SODIUM CHLORIDE 0.9% IN PLASTIC CONTAINER [Concomitant]
     Indication: DRUG USE FOR UNKNOWN INDICATION
     Route: 042
  112. 0.45% SODIUM CHLORIDE IRRIGATION IN PLASTIC CONTAINER [Concomitant]
     Indication: DRUG USE FOR UNKNOWN INDICATION
     Route: 042
  113. NYSTATIN [Concomitant]
     Indication: DRUG USE FOR UNKNOWN INDICATION
     Route: 065
  114. PANTOPRAZOLE [Concomitant]
     Indication: DRUG USE FOR UNKNOWN INDICATION
     Route: 065
  115. PEPCID [Concomitant]
     Indication: DRUG USE FOR UNKNOWN INDICATION
     Route: 065
  116. POTASSIUM CHLORIDE [Concomitant]
     Indication: DRUG USE FOR UNKNOWN INDICATION
     Route: 065
  117. PREVALITE [Concomitant]
     Indication: DRUG USE FOR UNKNOWN INDICATION
     Route: 065
  118. BETADINE [Concomitant]
     Indication: DRUG USE FOR UNKNOWN INDICATION
     Route: 065
  119. PROCRIT [Concomitant]
     Indication: DRUG USE FOR UNKNOWN INDICATION
     Route: 065
  120. QUETIAPINE [Concomitant]
     Indication: DRUG USE FOR UNKNOWN INDICATION
     Route: 065
  121. RENAGEL [Concomitant]
     Indication: DRUG USE FOR UNKNOWN INDICATION
     Route: 065
  122. SODIUM CHLORIDE 0.9% IN PLASTIC CONTAINER [Concomitant]
     Route: 042
  123. SODIUM CHLORIDE 0.9% IN PLASTIC CONTAINER [Concomitant]
     Route: 042
  124. SODIUM CITRATE [Concomitant]
     Indication: DRUG USE FOR UNKNOWN INDICATION
     Route: 065
  125. PHOSPHO-SODA [Concomitant]
     Indication: DRUG USE FOR UNKNOWN INDICATION
     Route: 065
  126. TYLENOL [Concomitant]
     Indication: DRUG USE FOR UNKNOWN INDICATION
     Route: 065
  127. VENOFER [Concomitant]
     Indication: DRUG USE FOR UNKNOWN INDICATION
     Route: 065
  128. VIT K ANTAGONISTS [Concomitant]
     Indication: DRUG USE FOR UNKNOWN INDICATION
     Route: 048
  129. WARFARIN SODIUM [Concomitant]
     Indication: DRUG USE FOR UNKNOWN INDICATION
     Route: 065
  130. ZOFRAN [Concomitant]
     Indication: DRUG USE FOR UNKNOWN INDICATION
     Route: 065
  131. ROCURONIUM BROMIDE [Concomitant]
     Indication: DRUG USE FOR UNKNOWN INDICATION
     Route: 042
  132. ROWASA [Concomitant]
     Indication: DRUG USE FOR UNKNOWN INDICATION
     Route: 054
  133. SIMVASTATIN [Concomitant]
     Route: 065
  134. EZETIMIBE [Concomitant]
     Indication: DRUG USE FOR UNKNOWN INDICATION
     Route: 065
  135. CELEXA [Concomitant]
     Indication: DRUG USE FOR UNKNOWN INDICATION
     Route: 065
  136. AMITRIPTYLINE W/PERPHENAZINE [Concomitant]
     Indication: DRUG USE FOR UNKNOWN INDICATION
     Route: 065

REACTIONS (34)
  - ACUTE RESPIRATORY DISTRESS SYNDROME [None]
  - ACUTE RESPIRATORY FAILURE [None]
  - ANAEMIA [None]
  - BLOOD PRESSURE FLUCTUATION [None]
  - BRONCHIAL HYPERREACTIVITY [None]
  - CLOSTRIDIUM DIFFICILE SEPSIS [None]
  - DEEP VEIN THROMBOSIS [None]
  - DEHYDRATION [None]
  - DEVICE RELATED INFECTION [None]
  - DIABETES MELLITUS [None]
  - ENTEROCOCCAL INFECTION [None]
  - FUNGAL INFECTION [None]
  - HYPERLIPIDAEMIA [None]
  - HYPEROSMOLAR STATE [None]
  - HYPERTENSION [None]
  - HYPOTENSION [None]
  - ILEUS PARALYTIC [None]
  - LIVER FUNCTION TEST ABNORMAL [None]
  - LOBAR PNEUMONIA [None]
  - LOWER GASTROINTESTINAL HAEMORRHAGE [None]
  - METABOLIC ACIDOSIS [None]
  - MUSCLE HAEMORRHAGE [None]
  - PEPTIC ULCER [None]
  - PLEURAL EFFUSION [None]
  - PSEUDOMEMBRANOUS COLITIS [None]
  - RENAL FAILURE ACUTE [None]
  - RENAL TUBULAR NECROSIS [None]
  - RHABDOMYOLYSIS [None]
  - SEPSIS [None]
  - SHOCK [None]
  - STREPTOCOCCAL SEPSIS [None]
  - THROMBOCYTOPENIA [None]
  - URINARY TRACT INFECTION ENTEROCOCCAL [None]
  - VASCULAR INSUFFICIENCY [None]
